FAERS Safety Report 9585778 (Version 1)
Quarter: 2013Q4

REPORT INFORMATION
  Report Type: Spontaneous
  Country: US (occurrence: US)
  Receive Date: 20131003
  Receipt Date: 20131003
  Transmission Date: 20140711
  Serious: Yes (Other)
  Sender: FDA-Public Use
  Company Number: US-BRISTOL-MYERS SQUIBB COMPANY-19421114

PATIENT
  Age: 34 Year
  Sex: Female
  Weight: 83.44 kg

DRUGS (6)
  1. ABILIFY [Suspect]
     Indication: BIPOLAR DISORDER
     Dosage: 2011-30MG;RES IN 2012- UNK STOP; RES 2013
     Dates: start: 2011
  2. ABILIFY [Suspect]
     Indication: MAJOR DEPRESSION
     Dosage: 2011-30MG;RES IN 2012- UNK STOP; RES 2013
     Dates: start: 2011
  3. TRAZODONE HCL [Concomitant]
     Indication: SOMNOLENCE
  4. CELEXA [Concomitant]
  5. DEPAKOTE [Concomitant]
     Indication: AFFECTIVE DISORDER
  6. AMBIEN [Concomitant]
     Indication: INSOMNIA

REACTIONS (4)
  - Mania [Unknown]
  - Restlessness [Unknown]
  - Psychomotor hyperactivity [Unknown]
  - Expired drug administered [Unknown]
